FAERS Safety Report 12711894 (Version 1)
Quarter: 2016Q3

REPORT INFORMATION
  Report Type: Spontaneous
  Country: CN (occurrence: CN)
  Receive Date: 20160902
  Receipt Date: 20160902
  Transmission Date: 20161109
  Serious: Yes (Hospitalization)
  Sender: FDA-Public Use
  Company Number: PHHY2016CN119696

PATIENT
  Age: 34 Year
  Sex: Male
  Weight: 55 kg

DRUGS (1)
  1. VOLTAREN [Suspect]
     Active Substance: DICLOFENAC SODIUM
     Indication: PYREXIA
     Dosage: 25 MG, TID
     Route: 048
     Dates: start: 20160603, end: 20160603

REACTIONS (3)
  - Pharyngeal hypoaesthesia [Recovering/Resolving]
  - Laryngeal obstruction [Recovering/Resolving]
  - Pruritus [Recovering/Resolving]

NARRATIVE: CASE EVENT DATE: 20160603
